FAERS Safety Report 15435705 (Version 1)
Quarter: 2018Q4

REPORT INFORMATION
  Report Type: Spontaneous
  Country: PT (occurrence: PT)
  Receive Date: 20180927
  Receipt Date: 20180927
  Transmission Date: 20190204
  Serious: Yes (Hospitalization, Other)
  Sender: FDA-Public Use
  Company Number: PT-SA-2018SA169250

PATIENT
  Age: 62 Year
  Sex: Male

DRUGS (12)
  1. METFORMIN HYDROCHLORIDE. [Suspect]
     Active Substance: METFORMIN HYDROCHLORIDE
     Indication: TYPE 2 DIABETES MELLITUS
  2. INDAPAMIDE. [Suspect]
     Active Substance: INDAPAMIDE
     Indication: HYPERTENSION
  3. AMPHOTERICIN B/TETRACYCLINE [Suspect]
     Active Substance: AMPHOTERICIN B\TETRACYCLINE
     Dosage: 300 MG, QD
  4. VANCOMYCIN [Suspect]
     Active Substance: VANCOMYCIN
  5. MEROPENEM. [Suspect]
     Active Substance: MEROPENEM
     Dosage: 3 G, QD
  6. CYCLOSPORINE. [Suspect]
     Active Substance: CYCLOSPORINE
     Dosage: UNK
  7. PIPERACILLIN AND TAZOBACTAM [Suspect]
     Active Substance: PIPERACILLIN SODIUM\TAZOBACTAM SODIUM
  8. EZETIMIBE/SIMVASTATIN [Suspect]
     Active Substance: EZETIMIBE\SIMVASTATIN
  9. BISOPROLOL SALT NOT SPECIFIED [Suspect]
     Active Substance: BISOPROLOL
     Indication: HYPERTENSION
  10. PERINDOPRIL [Suspect]
     Active Substance: PERINDOPRIL
     Indication: HYPERTENSION
  11. AMLODIPINE [Suspect]
     Active Substance: AMLODIPINE BESYLATE
     Indication: HYPERTENSION
  12. ACETYLSALICYLIC ACID [Suspect]
     Active Substance: ASPIRIN
     Indication: PRODUCT USED FOR UNKNOWN INDICATION
     Dosage: UNK

REACTIONS (18)
  - Pulmonary alveolar haemorrhage [Recovered/Resolved]
  - Pleuritic pain [Recovered/Resolved]
  - Dyspnoea [Recovered/Resolved]
  - Crepitations [Unknown]
  - Renal impairment [Recovering/Resolving]
  - Pyrexia [Recovered/Resolved]
  - Hypocapnia [Unknown]
  - C-reactive protein increased [Unknown]
  - Pneumonia [Recovered/Resolved]
  - Bronchopleural fistula [Recovered/Resolved]
  - Leukocytosis [Unknown]
  - Pulmonary toxicity [Recovered/Resolved]
  - Pneumothorax [Recovered/Resolved]
  - Sinus tachycardia [Unknown]
  - Nephropathy [Recovering/Resolving]
  - Respiratory failure [Recovered/Resolved]
  - Hypoxia [Recovered/Resolved]
  - Cough [Recovered/Resolved]
